FAERS Safety Report 4548795-0 (Version None)
Quarter: 2005Q1

REPORT INFORMATION
  Report Type: 
  Country: None (occurrence: None)
  Receive Date: 20050107
  Receipt Date: 20050107
  Transmission Date: 20050727
  Serious: Yes (Death)
  Sender: FDA-Public Use
  Company Number: None

PATIENT
  Age: 41 Year
  Sex: Female

DRUGS (4)
  1. MERCAPTOPURINE [Suspect]
     Indication: CROHN'S DISEASE
     Dosage: 50MG  BID ORAL
     Route: 048
  2. PENTASA [Suspect]
     Indication: CROHN'S DISEASE
     Dosage: 250MG  8 PER DAY ORAL
     Route: 048
  3. ZANTAC [Concomitant]
  4. ZOLOFT [Concomitant]

REACTIONS (2)
  - PNEUMONIA [None]
  - SEPSIS [None]
